FAERS Safety Report 20941505 (Version 1)
Quarter: 2022Q2

REPORT INFORMATION
  Report Type: Spontaneous
  Country: US (occurrence: US)
  Receive Date: 20220610
  Receipt Date: 20220610
  Transmission Date: 20220721
  Serious: No
  Sender: FDA-Public Use
  Company Number: US-ALEMBIC PHARMACUETICALS LIMITED-2022SCAL000247

PATIENT

DRUGS (12)
  1. HYDROCHLOROTHIAZIDE [Suspect]
     Active Substance: HYDROCHLOROTHIAZIDE
     Indication: Product used for unknown indication
     Dosage: 12.5 MILLIGRAM
     Route: 065
  2. HYDROCHLOROTHIAZIDE [Suspect]
     Active Substance: HYDROCHLOROTHIAZIDE
     Dosage: 25 MILLIGRAM
     Route: 065
  3. KORLYM [Suspect]
     Active Substance: MIFEPRISTONE
     Indication: Cushing^s syndrome
     Dosage: 300 MILLIGRAM, QD
     Route: 048
     Dates: start: 20220225, end: 20220310
  4. KORLYM [Suspect]
     Active Substance: MIFEPRISTONE
     Dosage: 600 MILLIGRAM, QD
     Route: 048
     Dates: start: 20220311
  5. SYNTHROID [Suspect]
     Active Substance: LEVOTHYROXINE SODIUM
     Indication: Product used for unknown indication
     Dosage: 50 MICROGRAM
     Route: 065
     Dates: start: 20220414, end: 20220420
  6. SYNTHROID [Suspect]
     Active Substance: LEVOTHYROXINE SODIUM
     Dosage: 100 MICROGRAM
     Route: 065
     Dates: start: 20220421
  7. DYPHYLLINE [Suspect]
     Active Substance: DYPHYLLINE
     Indication: Rhinorrhoea
     Dosage: 2 SPRAYS EACH NOSTRIL, BID
     Dates: start: 20220318
  8. DYPHYLLINE [Suspect]
     Active Substance: DYPHYLLINE
     Indication: Nasal congestion
  9. CLARITIN [Concomitant]
     Active Substance: LORATADINE
     Indication: Product used for unknown indication
     Dosage: UNK
     Route: 065
  10. FAMOTIDINE [Concomitant]
     Active Substance: FAMOTIDINE
     Indication: Product used for unknown indication
     Dosage: UNK
     Route: 065
  11. LO LOESTRIN FE [Concomitant]
     Active Substance: ETHINYL ESTRADIOL\NORETHINDRONE ACETATE
     Indication: Product used for unknown indication
     Dosage: UNK
     Route: 065
  12. SPIRONOLACTONE [Concomitant]
     Active Substance: SPIRONOLACTONE
     Indication: Product used for unknown indication
     Dosage: UNK
     Route: 065

REACTIONS (22)
  - Skin tightness [Not Recovered/Not Resolved]
  - Withdrawal syndrome [Unknown]
  - Nasal congestion [Not Recovered/Not Resolved]
  - Rhinorrhoea [Not Recovered/Not Resolved]
  - Seasonal allergy [Not Recovered/Not Resolved]
  - Palpitations [Unknown]
  - Dysgeusia [Unknown]
  - Mood swings [Recovering/Resolving]
  - Depressed mood [Not Recovered/Not Resolved]
  - Urinary incontinence [Recovering/Resolving]
  - Vitamin D decreased [Unknown]
  - Hyperhidrosis [Unknown]
  - Fatigue [Recovered/Resolved]
  - Vaginal haemorrhage [Unknown]
  - Swelling [Unknown]
  - Blood pressure increased [Unknown]
  - Blood thyroid stimulating hormone increased [Unknown]
  - Blood triglycerides increased [Unknown]
  - High density lipoprotein decreased [Unknown]
  - Vertigo [Unknown]
  - Headache [Recovered/Resolved]
  - Dizziness [Unknown]

NARRATIVE: CASE EVENT DATE: 20220225
